FAERS Safety Report 10487832 (Version 1)
Quarter: 2014Q4

REPORT INFORMATION
  Report Type: Spontaneous
  Country: US (occurrence: US)
  Receive Date: 20141001
  Receipt Date: 20141001
  Transmission Date: 20150528
  Serious: No
  Sender: FDA-Public Use
  Company Number: US-009507513-1409USA005553

PATIENT
  Sex: Female

DRUGS (1)
  1. CHLOR-TRIMETON [Suspect]
     Active Substance: CHLORPHENIRAMINE MALEATE
     Indication: PRODUCT USED FOR UNKNOWN INDICATION
     Dosage: 4 MG, UNKNOWN
     Route: 048

REACTIONS (4)
  - Drug ineffective [Unknown]
  - Drug administration error [Unknown]
  - Dependence [Unknown]
  - Incorrect drug administration duration [Unknown]
